FAERS Safety Report 9206420 (Version 1)
Quarter: 2013Q2

REPORT INFORMATION
  Report Type: Spontaneous
  Country: US (occurrence: US)
  Receive Date: 20130403
  Receipt Date: 20130403
  Transmission Date: 20140414
  Serious: No
  Sender: FDA-Public Use
  Company Number: US-009507513-1304USA001152

PATIENT
  Age: 52 Year
  Sex: Female
  Weight: 122.45 kg

DRUGS (18)
  1. VICTRELIS [Suspect]
     Dosage: 800  (4 DF)MG, TID
     Route: 048
  2. REBETOL [Suspect]
     Dosage: UNK
  3. PEGASYS [Suspect]
     Dosage: 180 MCG/M
  4. CYMBALTA [Concomitant]
  5. SINGULAIR [Concomitant]
  6. LASIX (FUROSEMIDE) [Concomitant]
  7. FLUTICASONE [Concomitant]
     Dosage: 50 MICROGRAM, UNK
  8. LISINOPRIL [Concomitant]
     Dosage: 5 MG, UNK
  9. CARVEDILOL [Concomitant]
     Dosage: 12.5 MG, UNK
  10. ALBUTEROL SULFATE [Concomitant]
     Dosage: .083 %, UNK
  11. ADVAIR [Concomitant]
     Dosage: 250/50UNK
  12. VITAMIN D (UNSPECIFIED) [Concomitant]
     Dosage: 50000 UNITS
  13. FIORICET [Concomitant]
  14. SPIRIVA [Concomitant]
  15. PROAIR HFA [Concomitant]
  16. UREA [Concomitant]
     Dosage: 50 %, UNK
  17. ASPIR-81 [Concomitant]
     Dosage: 81 MG, EC
  18. OXYCODONE [Concomitant]
     Dosage: 5 MG, UNK

REACTIONS (5)
  - Chest pain [Unknown]
  - Pallor [Unknown]
  - Asthenia [Unknown]
  - Fatigue [Unknown]
  - Dyspnoea [Unknown]
